FAERS Safety Report 12845687 (Version 2)
Quarter: 2016Q4

REPORT INFORMATION
  Report Type: Report from Study
  Country: HK (occurrence: HK)
  Receive Date: 20161013
  Receipt Date: 20161107
  Transmission Date: 20170207
  Serious: Yes (Hospitalization, Other)
  Sender: FDA-Public Use
  Company Number: HK-B.I. PHARMACEUTICALS,INC./RIDGEFIELD-2016-BI-55309BI

PATIENT
  Age: 70 Year
  Sex: Male
  Weight: 41 kg

DRUGS (8)
  1. BIBW 2992 [Suspect]
     Active Substance: AFATINIB
     Route: 048
     Dates: start: 20160621, end: 20160726
  2. BIBW 2992 [Suspect]
     Active Substance: AFATINIB
     Indication: LIP AND/OR ORAL CAVITY CANCER
     Route: 048
     Dates: start: 20160517, end: 20160613
  3. BIBW 2992 [Suspect]
     Active Substance: AFATINIB
     Route: 048
     Dates: start: 20160803, end: 20160823
  4. ASPIRIN. [Concomitant]
     Active Substance: ASPIRIN
     Indication: PROPHYLAXIS
     Route: 048
     Dates: start: 20150304
  5. TRAMADOL. [Concomitant]
     Active Substance: TRAMADOL
     Indication: ORAL PAIN
     Route: 048
     Dates: start: 20151014
  6. FAMOTIDINE. [Concomitant]
     Active Substance: FAMOTIDINE
     Indication: PROPHYLAXIS
     Route: 048
     Dates: start: 20150304
  7. THYROXINE [Concomitant]
     Active Substance: LEVOTHYROXINE
     Indication: HYPOTHYROIDISM
     Route: 048
     Dates: start: 20150331
  8. POVIDONE-IODINE. [Concomitant]
     Active Substance: POVIDONE-IODINE
     Indication: ORAL PAIN
     Dosage: STRENGTH: 1%
     Route: 048
     Dates: start: 20160517

REACTIONS (4)
  - Vomiting [Recovered/Resolved]
  - Cellulitis [Recovered/Resolved]
  - Lung neoplasm malignant [Not Recovered/Not Resolved]
  - Diarrhoea [Recovered/Resolved]

NARRATIVE: CASE EVENT DATE: 20160808
